FAERS Safety Report 24551817 (Version 1)
Quarter: 2024Q4

REPORT INFORMATION
  Report Type: Report from Study
  Country: ZA (occurrence: ZA)
  Receive Date: 20241026
  Receipt Date: 20241026
  Transmission Date: 20250114
  Serious: Yes (Life-Threatening, Other)
  Sender: ALEXION PHARMACEUTICALS
  Company Number: ZA-AstraZeneca-CH-00727798A

PATIENT
  Age: 59 Year

DRUGS (8)
  1. DAPAGLIFLOZIN [Suspect]
     Active Substance: DAPAGLIFLOZIN
  2. CLOBAZAM [Concomitant]
     Active Substance: CLOBAZAM
     Route: 065
  3. RIVAROXABAN [Concomitant]
     Active Substance: RIVAROXABAN
     Route: 065
  4. ROSUVASTATIN CALCIUM [Concomitant]
     Active Substance: ROSUVASTATIN CALCIUM
     Route: 065
  5. Pritor [Concomitant]
     Route: 065
  6. CARVEDILOL [Concomitant]
     Active Substance: CARVEDILOL
     Route: 065
  7. JANUMET [Concomitant]
     Active Substance: METFORMIN HYDROCHLORIDE\SITAGLIPTIN PHOSPHATE
     Route: 065
  8. Allergex [Concomitant]
     Route: 065

REACTIONS (7)
  - Cardiac disorder [Unknown]
  - Wound sepsis [Unknown]
  - Impaired healing [Unknown]
  - Wound haemorrhage [Unknown]
  - Blood pressure increased [Unknown]
  - COVID-19 [Unknown]
  - Blood pressure fluctuation [Unknown]
